FAERS Safety Report 19678849 (Version 1)
Quarter: 2021Q3

REPORT INFORMATION
  Report Type: Spontaneous
  Country: FR (occurrence: FR)
  Receive Date: 20210809
  Receipt Date: 20210809
  Transmission Date: 20211014
  Serious: Yes (Hospitalization)
  Sender: FDA-Public Use
  Company Number: FR-MYLANLABS-2021M1048567

PATIENT
  Age: 36 Year
  Sex: Female
  Weight: 56 kg

DRUGS (8)
  1. POSACONAZOLE [Suspect]
     Active Substance: POSACONAZOLE
     Indication: OSTEITIS
     Dosage: 300 MILLIGRAM, QD
     Route: 048
     Dates: start: 20210108, end: 20210122
  2. BACTRIM [Suspect]
     Active Substance: SULFAMETHOXAZOLE\TRIMETHOPRIM
     Indication: OSTEITIS
     Dosage: 3 GRAM, QD
     Route: 048
     Dates: start: 20210108
  3. DOLIPRAN                           /00020001/ [Concomitant]
     Active Substance: ACETAMINOPHEN
     Dosage: 4 GRAM, QD
  4. LAROXYL [Concomitant]
     Active Substance: AMITRIPTYLINE HYDROCHLORIDE
     Dosage: 16 GOUTTES PAR JOUR, 4 GOUTTES MAX/PRISE
     Route: 048
  5. VANCOMYCIN [Suspect]
     Active Substance: VANCOMYCIN
     Indication: OSTEITIS
     Dosage: 1 GRAM, BID
     Route: 042
     Dates: start: 20210108, end: 20210122
  6. BACTRIM [Suspect]
     Active Substance: SULFAMETHOXAZOLE\TRIMETHOPRIM
     Dosage: 3 GRAM, QD
     Route: 048
     Dates: start: 20210108, end: 20210122
  7. CETIRIZIN [Concomitant]
     Active Substance: CETIRIZINE HYDROCHLORIDE
     Dosage: 10 MILLIGRAM, QD
     Route: 048
  8. KARDEGIC [Concomitant]
     Active Substance: ASPIRIN DL-LYSINE
     Dosage: 75 MILLIGRAM, QD
     Route: 048

REACTIONS (1)
  - Bicytopenia [Recovering/Resolving]

NARRATIVE: CASE EVENT DATE: 20210119
